FAERS Safety Report 5106361-2 (Version None)
Quarter: 2006Q3

REPORT INFORMATION
  Report Type: 
  Country: None (occurrence: None)
  Receive Date: 20060731
  Receipt Date: 20060503
  Transmission Date: 20061208
  Serious: Yes (Hospitalization)
  Sender: FDA-Public Use
  Company Number: US-JNJFOC-20060405829

PATIENT
  Age: 88 Year
  Sex: Female

DRUGS (6)
  1. RISPERDAL [Suspect]
     Indication: CRYING
     Dates: start: 20060419
  2. METOPROLOL TARTRATE [Concomitant]
  3. LASIX [Concomitant]
  4. XANAX [Concomitant]
  5. EFFEXOR [Concomitant]
  6. K-DUR 10 [Concomitant]

REACTIONS (1)
  - DEPRESSED LEVEL OF CONSCIOUSNESS [None]
